FAERS Safety Report 26135260 (Version 1)
Quarter: 2025Q4

REPORT INFORMATION
  Report Type: Spontaneous
  Country: US (occurrence: None)
  Receive Date: 20251208
  Receipt Date: 20251208
  Transmission Date: 20260119
  Serious: Yes (Other)
  Sender: FDA-CTU
  Company Number: None

PATIENT
  Age: 70 Year
  Sex: Female
  Weight: 74.25 kg

DRUGS (2)
  1. ZEPBOUND [Suspect]
     Active Substance: TIRZEPATIDE
     Indication: Obesity
     Dosage: 10 MG WEEKLY SUBCUTANEOUS
     Route: 058
     Dates: start: 20241205, end: 20251127
  2. ZEPBOUND [Concomitant]
     Active Substance: TIRZEPATIDE
     Dates: start: 20241205, end: 20251127

REACTIONS (2)
  - Thyroid mass [None]
  - Thyroid cyst [None]

NARRATIVE: CASE EVENT DATE: 20251125
